FAERS Safety Report 22815430 (Version 4)
Quarter: 2024Q1

REPORT INFORMATION
  Report Type: Spontaneous
  Country: CN (occurrence: CN)
  Receive Date: 20230811
  Receipt Date: 20240223
  Transmission Date: 20240409
  Serious: Yes (Other)
  Sender: FDA-Public Use
  Company Number: CN-SUN PHARMACEUTICAL INDUSTRIES LTD-2023R1-403875

PATIENT
  Age: 32 Year
  Sex: Female

DRUGS (4)
  1. DIGOXIN [Suspect]
     Active Substance: DIGOXIN
     Indication: Atrial flutter
     Dosage: 0.25 MILLIGRAM, TID
     Route: 048
  2. DIGOXIN [Suspect]
     Active Substance: DIGOXIN
     Dosage: 0.25 MILLIGRAM, QD
     Route: 048
  3. SOTALOL [Suspect]
     Active Substance: SOTALOL
     Indication: Atrial flutter
     Dosage: 80 MILLIGRAM, BID
     Route: 048
  4. SOTALOL [Suspect]
     Active Substance: SOTALOL
     Dosage: 160 MILLIGRAM, BID
     Route: 048

REACTIONS (5)
  - Drug ineffective [Unknown]
  - Exposure during pregnancy [Unknown]
  - Drug intolerance [Unknown]
  - Premature delivery [Unknown]
  - Thrombocytopenia [Unknown]
